FAERS Safety Report 22807145 (Version 3)
Quarter: 2023Q4

REPORT INFORMATION
  Report Type: Spontaneous
  Country: JP (occurrence: JP)
  Receive Date: 20230810
  Receipt Date: 20231025
  Transmission Date: 20240110
  Serious: Yes (Death, Other)
  Sender: FDA-Public Use
  Company Number: JP-UNITED THERAPEUTICS-UNT-2023-022570

PATIENT
  Age: 55 Year
  Sex: Male
  Weight: 83 kg

DRUGS (10)
  1. TYVASO [Suspect]
     Active Substance: TREPROSTINIL
     Indication: Pulmonary arterial hypertension
     Dosage: 18 ?G, TID
     Dates: start: 20230621, end: 20230622
  2. TYVASO [Suspect]
     Active Substance: TREPROSTINIL
     Dosage: 18 ?G, QID
     Dates: start: 20230623, end: 20230701
  3. TYVASO [Suspect]
     Active Substance: TREPROSTINIL
     Dosage: 24 ?G, QID
     Dates: start: 20230702, end: 20230718
  4. TYVASO [Suspect]
     Active Substance: TREPROSTINIL
     Dosage: 30 ?G, QID
     Dates: start: 20230719, end: 20230720
  5. OFEV [Concomitant]
     Active Substance: NINTEDANIB
     Indication: Idiopathic interstitial pneumonia
     Dosage: 150 MG, BID
     Route: 048
     Dates: end: 20230720
  6. CLENBUTEROL HYDROCHLORIDE [Concomitant]
     Active Substance: CLENBUTEROL HYDROCHLORIDE
     Indication: Idiopathic interstitial pneumonia
     Dosage: 20 ?G, BID
     Route: 048
     Dates: end: 20230720
  7. AMBROXOL HYDROCHLORIDE [Concomitant]
     Active Substance: AMBROXOL HYDROCHLORIDE
     Indication: Idiopathic interstitial pneumonia
     Dosage: 15 MG, TID
     Route: 048
     Dates: end: 20230720
  8. SPIRONOLACTONE [Concomitant]
     Active Substance: SPIRONOLACTONE
     Indication: Right ventricular failure
     Dosage: 25 MG, QD
     Route: 048
     Dates: start: 20230623, end: 20230720
  9. AZOSEMIDE [Concomitant]
     Active Substance: AZOSEMIDE
     Indication: Right ventricular failure
     Dosage: 60 MG, QD
     Route: 048
     Dates: start: 20230630, end: 20230720
  10. GEFAPIXANT CITRATE [Concomitant]
     Active Substance: GEFAPIXANT CITRATE
     Indication: Idiopathic interstitial pneumonia
     Dosage: 45 MG, BID
     Route: 048
     Dates: end: 20230720

REACTIONS (1)
  - Cardio-respiratory arrest [Fatal]

NARRATIVE: CASE EVENT DATE: 20230720
